FAERS Safety Report 5412447-5 (Version None)
Quarter: 2007Q3

REPORT INFORMATION
  Report Type: 
  Country: None (occurrence: None)
  Receive Date: 20070813
  Receipt Date: 20070801
  Transmission Date: 20080115
  Serious: Yes (Hospitalization, Other)
  Sender: FDA-Public Use
  Company Number: SEWYE149708AUG07

PATIENT
  Sex: Male

DRUGS (2)
  1. EFFEXOR [Suspect]
     Indication: ANXIETY
     Route: 048
     Dates: start: 20070202, end: 20070226
  2. EFFEXOR [Suspect]
     Dosage: UNSPECIFIED
     Route: 048

REACTIONS (5)
  - CONSTIPATION [None]
  - GASTROINTESTINAL DISORDER [None]
  - INFECTION [None]
  - INTESTINAL HAEMORRHAGE [None]
  - MEDICATION RESIDUE [None]
